FAERS Safety Report 10891722 (Version 2)
Quarter: 2015Q2

REPORT INFORMATION
  Report Type: Spontaneous
  Country: JP (occurrence: JP)
  Receive Date: 20150306
  Receipt Date: 20150612
  Transmission Date: 20150821
  Serious: Yes (Hospitalization, Other)
  Sender: FDA-Public Use
  Company Number: PHJP2015JP002426

PATIENT
  Age: 40 Year
  Sex: Male

DRUGS (1)
  1. TEGRETOL [Suspect]
     Active Substance: CARBAMAZEPINE
     Indication: HEADACHE
     Dosage: UNK
     Route: 048
     Dates: start: 20141127, end: 20150118

REACTIONS (8)
  - Dysphagia [Unknown]
  - Adenovirus infection [Unknown]
  - Stevens-Johnson syndrome [Unknown]
  - Drug eruption [Recovering/Resolving]
  - Oropharyngeal pain [Unknown]
  - Oedema peripheral [Unknown]
  - Oral mucosa erosion [Unknown]
  - Off label use [Unknown]

NARRATIVE: CASE EVENT DATE: 20141127
